FAERS Safety Report 19135830 (Version 6)
Quarter: 2021Q3

REPORT INFORMATION
  Report Type: Report from Study
  Country: CZ (occurrence: CZ)
  Receive Date: 20210414
  Receipt Date: 20210927
  Transmission Date: 20211014
  Serious: Yes (Death, Life-Threatening, Hospitalization)
  Sender: FDA-Public Use
  Company Number: NVSC2021CZ078230

PATIENT
  Age: 63 Year
  Sex: Female
  Weight: 76 kg

DRUGS (31)
  1. TELMISARTANUM [Concomitant]
     Indication: HYPERTENSION
     Dosage: UNK
     Route: 065
     Dates: start: 20200716, end: 20210409
  2. GANCICLOVIRUM [Concomitant]
     Dosage: UNK
     Route: 065
     Dates: start: 20210503
  3. LINAGLIPTIN [Concomitant]
     Active Substance: LINAGLIPTIN
     Indication: NEW ONSET DIABETES AFTER TRANSPLANTATION
     Dosage: UNK
     Route: 065
     Dates: start: 20201201, end: 20210409
  4. ATORVASTATINUM [Concomitant]
     Active Substance: ATORVASTATIN
     Indication: DYSLIPIDAEMIA
     Dosage: UNK
     Route: 065
     Dates: start: 20210401, end: 20210405
  5. ENOXAPARIN [Concomitant]
     Active Substance: ENOXAPARIN
     Indication: PROPHYLAXIS
     Dosage: UNK
     Route: 065
     Dates: start: 20210405, end: 20210405
  6. MYCOPHENOLATE MOFETIL. [Suspect]
     Active Substance: MYCOPHENOLATE MOFETIL
     Indication: RENAL TRANSPLANT
     Dosage: 1 G, QD
     Route: 048
     Dates: start: 20190618, end: 20210202
  7. GANCICLOVIRUM [Concomitant]
     Dosage: UNK
     Route: 065
     Dates: start: 20210424, end: 20210428
  8. BUDESONIDUM [Concomitant]
     Active Substance: BUDESONIDE
     Indication: COUGH
     Dosage: UNK
     Route: 065
     Dates: start: 20200310
  9. PREDNISONE. [Concomitant]
     Active Substance: PREDNISONE
     Dosage: UNK
     Route: 065
     Dates: start: 20210322, end: 20210401
  10. METOPROLOL. [Concomitant]
     Active Substance: METOPROLOL
     Dosage: UNK
     Route: 065
     Dates: start: 20210403, end: 20210427
  11. GANCICLOVIRUM [Concomitant]
     Dosage: UNK
     Route: 065
     Dates: start: 20210429, end: 20210430
  12. GANCICLOVIRUM [Concomitant]
     Dosage: UNK
     Route: 065
     Dates: start: 20210501, end: 20210502
  13. FLUCONAZOLUM [Concomitant]
     Indication: FUNGAL INFECTION
     Dosage: UNK
     Route: 065
     Dates: start: 20210315, end: 20210325
  14. CEFUROXIMUM [Concomitant]
     Indication: LEUKOCYTURIA
     Dosage: UNK
     Route: 065
     Dates: start: 20210313, end: 20210320
  15. TACROLIMUS. [Concomitant]
     Active Substance: TACROLIMUS
     Indication: PROPHYLAXIS AGAINST TRANSPLANT REJECTION
     Dosage: UNK
     Route: 065
     Dates: start: 20210329, end: 20210401
  16. METOPROLOL. [Concomitant]
     Active Substance: METOPROLOL
     Indication: HYPERTENSION
     Dosage: UNK
     Route: 065
     Dates: start: 20190625, end: 20210404
  17. SALBUTAMOLUM [Concomitant]
     Active Substance: ALBUTEROL
     Indication: COUGH
     Dosage: UNK
     Route: 065
     Dates: start: 20200327
  18. FILGRASTIMUM [Concomitant]
     Indication: LEUKOPENIA
     Dosage: UNK
     Route: 065
     Dates: start: 20210313, end: 20210313
  19. PLASMALYTE [Concomitant]
     Active Substance: ELECTROLYTES NOS
     Indication: SUPPLEMENTATION THERAPY
     Dosage: UNK
     Route: 065
     Dates: start: 20210401, end: 20210401
  20. SPIRONOLACTONUM [Concomitant]
     Indication: OEDEMA PERIPHERAL
     Dosage: UNK
     Route: 065
     Dates: start: 20200421
  21. ESOMEPRAZOLUM [Concomitant]
     Indication: PROPHYLAXIS AGAINST GASTROINTESTINAL ULCER
     Dosage: UNK
     Route: 065
     Dates: start: 20210322, end: 20210409
  22. FILGRASTIMUM [Concomitant]
     Indication: NEUTROPENIA
     Dosage: UNK
     Route: 065
     Dates: start: 20210401, end: 20210401
  23. INSULINUM HUMANUM [Concomitant]
     Indication: NEW ONSET DIABETES AFTER TRANSPLANTATION
     Dosage: UNK
     Route: 065
     Dates: start: 20210401, end: 20210401
  24. ENOXAPARIN [Concomitant]
     Active Substance: ENOXAPARIN
     Dosage: UNK
     Route: 065
     Dates: start: 20210406, end: 20210409
  25. ISCALIMAB [Suspect]
     Active Substance: ISCALIMAB
     Indication: RENAL TRANSPLANT
     Dosage: 13.2 ML, OTHER
     Route: 042
     Dates: start: 20190618, end: 20210216
  26. AMBROXOL [Concomitant]
     Active Substance: AMBROXOL
     Indication: COUGH
     Dosage: UNK
     Route: 065
     Dates: start: 20200421
  27. PREDNISONE. [Concomitant]
     Active Substance: PREDNISONE
     Indication: PROPHYLAXIS AGAINST TRANSPLANT REJECTION
     Dosage: 20 MG, QD
     Route: 065
     Dates: start: 20210202
  28. GANCICLOVIRUM [Concomitant]
     Indication: CYTOMEGALOVIRUS INFECTION
     Dosage: UNK
     Route: 065
     Dates: start: 20210422, end: 20210423
  29. VALGANCICLOVIRUM [Concomitant]
     Indication: CYTOMEGALOVIRUS INFECTION
     Dosage: UNK
     Route: 065
     Dates: start: 20210313, end: 20210314
  30. VALGANCICLOVIRUM [Concomitant]
     Dosage: UNK
     Route: 065
     Dates: start: 20210315, end: 20210331
  31. METOPROLOL. [Concomitant]
     Active Substance: METOPROLOL
     Dosage: UNK
     Route: 065
     Dates: start: 20210210, end: 20210408

REACTIONS (1)
  - Pneumonia [Fatal]

NARRATIVE: CASE EVENT DATE: 20210401
